FAERS Safety Report 12111497 (Version 2)
Quarter: 2016Q2

REPORT INFORMATION
  Report Type: Spontaneous
  Country: US (occurrence: US)
  Receive Date: 20160224
  Receipt Date: 20160503
  Transmission Date: 20160815
  Serious: No
  Sender: FDA-Public Use
  Company Number: US-ASTRAZENECA-2016SE16174

PATIENT
  Age: 360 Day
  Sex: Female
  Weight: 43.1 kg

DRUGS (6)
  1. SYNAGIS [Suspect]
     Active Substance: PALIVIZUMAB
     Indication: ANTIVIRAL PROPHYLAXIS
     Dosage: 15 MG/KG, MONTHLY
     Route: 030
     Dates: start: 201602
  2. SYNAGIS [Suspect]
     Active Substance: PALIVIZUMAB
     Indication: ANTIVIRAL PROPHYLAXIS
     Dosage: 15 MG/KG, MONTHLY
     Route: 030
     Dates: start: 20151130
  3. SYNAGIS [Suspect]
     Active Substance: PALIVIZUMAB
     Indication: CARDIAC SEPTAL DEFECT
     Dosage: 15 MG/KG, MONTHLY
     Route: 030
     Dates: start: 201602
  4. SYNAGIS [Suspect]
     Active Substance: PALIVIZUMAB
     Indication: CARDIAC SEPTAL DEFECT
     Dosage: 15 MG/KG, MONTHLY
     Route: 030
     Dates: start: 20151130
  5. SYNAGIS [Suspect]
     Active Substance: PALIVIZUMAB
     Indication: CARDIAC SEPTAL DEFECT
     Dosage: 15 MG/KG, MONTHLY
     Route: 030
     Dates: start: 201512
  6. SYNAGIS [Suspect]
     Active Substance: PALIVIZUMAB
     Indication: ANTIVIRAL PROPHYLAXIS
     Dosage: 15 MG/KG, MONTHLY
     Route: 030
     Dates: start: 201512

REACTIONS (2)
  - Nasopharyngitis [Recovered/Resolved]
  - Upper respiratory tract infection [Unknown]

NARRATIVE: CASE EVENT DATE: 20160224
